FAERS Safety Report 8078651-5 (Version None)
Quarter: 2012Q1

REPORT INFORMATION
  Report Type: 
  Country: None (occurrence: None)
  Receive Date: 20120124
  Receipt Date: 20120112
  Transmission Date: 20120608
  Serious: Yes (Hospitalization, Other)
  Sender: FDA-Public Use
  Company Number: NSR_00467_2012

PATIENT
  Age: 48 Year
  Sex: Male

DRUGS (10)
  1. PROPRANOLOL [Suspect]
     Indication: PORTAL HYPERTENSION
     Dosage: (40 M BID)
     Dates: start: 20070101, end: 20090101
  2. RANITIDINE [Concomitant]
  3. ASPIRIN [Concomitant]
  4. ATENOLOL [Suspect]
     Indication: MYOCARDIAL ISCHAEMIA
     Dosage: (DF) , (DF)
     Dates: start: 20050101, end: 20070101
  5. ATENOLOL [Suspect]
     Indication: MYOCARDIAL ISCHAEMIA
     Dosage: (DF) , (DF)
     Dates: start: 20090101, end: 20091101
  6. PRAVASTATIN [Concomitant]
  7. DIDANOSINE [Concomitant]
  8. SPIRONOLACTONE [Concomitant]
  9. AMILORIDE HYDROCHLORIDE [Concomitant]
  10. FUROSEMIDE [Concomitant]

REACTIONS (12)
  - HEPATIC CIRRHOSIS [None]
  - INFECTIOUS PERITONITIS [None]
  - GASTRIC ULCER [None]
  - PORTAL HYPERTENSIVE GASTROPATHY [None]
  - UMBILICAL HERNIA [None]
  - SCLEROSING ENCAPSULATING PERITONITIS [None]
  - ASCITES [None]
  - GYNAECOMASTIA [None]
  - INTESTINAL OBSTRUCTION [None]
  - SPLENOMEGALY [None]
  - VARICES OESOPHAGEAL [None]
  - DUODENITIS [None]
